FAERS Safety Report 5946402-3 (Version None)
Quarter: 2008Q4

REPORT INFORMATION
  Report Type: 
  Country: None (occurrence: None)
  Receive Date: 20081110
  Receipt Date: 20081101
  Transmission Date: 20090506
  Serious: Yes (Hospitalization)
  Sender: FDA-Public Use
  Company Number: DE-ABBOTT-08P-062-0485428-00

PATIENT
  Sex: Male
  Weight: 90 kg

DRUGS (2)
  1. TARKA [Suspect]
     Indication: DRUG USE FOR UNKNOWN INDICATION
     Route: 048
     Dates: start: 20081031, end: 20081031
  2. ETHANOL [Suspect]
     Indication: DRUG USE FOR UNKNOWN INDICATION
     Route: 048
     Dates: start: 20081031, end: 20081031

REACTIONS (2)
  - DIARRHOEA [None]
  - SUICIDE ATTEMPT [None]
